FAERS Safety Report 4602720-2 (Version None)
Quarter: 2005Q1

REPORT INFORMATION
  Report Type: 
  Country: None (occurrence: None)
  Receive Date: 20050307
  Receipt Date: 20050218
  Transmission Date: 20050727
  Serious: Yes (Disabling)
  Sender: FDA-Public Use
  Company Number: 2005033222

PATIENT
  Age: 88 Year
  Sex: Male
  Weight: 49 kg

DRUGS (5)
  1. CAMPTOSAR [Suspect]
     Indication: NON-SMALL CELL LUNG CANCER
     Dosage: 141 MG (INTERMITTENT), INTRAVENOUS
     Route: 042
     Dates: start: 20050111, end: 20050118
  2. NICARDIPINE HCL [Concomitant]
  3. ADENOSINE TRIPHOPHATE, DISODIUM SALT (ADENOSINE TRIPHOPHATE, DISODIUM [Concomitant]
  4. AMBROXOL HYDROCHLORIDE (AMBROXOL HYDROCHLORIDE) [Concomitant]
  5. SERRAPEPTATE (SERRAPEPTATE) [Concomitant]

REACTIONS (19)
  - BONE MARROW DEPRESSION [None]
  - CARDIOVASCULAR DISORDER [None]
  - CONSTIPATION [None]
  - CYANOSIS [None]
  - DEHYDRATION [None]
  - ELECTROCARDIOGRAM ABNORMAL [None]
  - ENTEROCOLITIS [None]
  - FEELING HOT [None]
  - GASTROENTERITIS STAPHYLOCOCCAL [None]
  - HAEMOGLOBIN DECREASED [None]
  - HYPOKINESIA [None]
  - NECROSIS [None]
  - PAIN IN EXTREMITY [None]
  - PERFORMANCE STATUS DECREASED [None]
  - PERIPHERAL COLDNESS [None]
  - PERIPHERAL OCCLUSIVE DISEASE [None]
  - PNEUMONIA [None]
  - RADIAL PULSE ABNORMAL [None]
  - SUBILEUS [None]
